FAERS Safety Report 11710152 (Version 2)
Quarter: 2015Q4

REPORT INFORMATION
  Report Type: Spontaneous
  Country: US (occurrence: US)
  Receive Date: 20151104
  Receipt Date: 20151110
  Transmission Date: 20160304
  Serious: No
  Sender: FDA-Public Use
  Company Number: US-ELI_LILLY_AND_COMPANY-US201105001328

PATIENT
  Age: 51 Year
  Sex: Female

DRUGS (4)
  1. FORTEO [Suspect]
     Active Substance: TERIPARATIDE
     Indication: OSTEOPOROSIS
     Dosage: 20 UG, QD
     Route: 065
     Dates: start: 20110420
  2. FORTEO [Suspect]
     Active Substance: TERIPARATIDE
     Dosage: 20 UG, QD
  3. FORTEO [Suspect]
     Active Substance: TERIPARATIDE
     Dosage: 20 UG, QD
     Route: 065
  4. FORTEO [Suspect]
     Active Substance: TERIPARATIDE
     Dosage: 20 UG, QD
     Route: 065

REACTIONS (12)
  - Fatigue [Unknown]
  - Pain in extremity [Not Recovered/Not Resolved]
  - Muscle spasms [Unknown]
  - Pain [Unknown]
  - Blood test abnormal [Unknown]
  - Diarrhoea [Unknown]
  - Intentional product misuse [Recovered/Resolved]
  - Headache [Unknown]
  - Arthralgia [Unknown]
  - Arthralgia [Not Recovered/Not Resolved]
  - Bone pain [Unknown]
  - Nausea [Unknown]

NARRATIVE: CASE EVENT DATE: 201105
